FAERS Safety Report 6429609-0 (Version None)
Quarter: 2009Q4

REPORT INFORMATION
  Report Type: 
  Country: None (occurrence: None)
  Receive Date: 20091103
  Receipt Date: 20091019
  Transmission Date: 20100525
  Serious: Yes (Hospitalization)
  Sender: FDA-Public Use
  Company Number: 02100-JPN-06-0186

PATIENT
  Age: 68 Year
  Sex: Female
  Weight: 46 kg

DRUGS (10)
  1. PLETAL [Suspect]
     Indication: CEREBRAL INFARCTION
     Dosage: 100 MG, BID ORAL
     Route: 048
     Dates: start: 20041014, end: 20050330
  2. RIZE (CLOTIAZEPAM) [Concomitant]
  3. ZANTAC 150 [Concomitant]
  4. AZOPT [Concomitant]
  5. RESCULA (ISOPROPYL UNOPROSTONE) [Concomitant]
  6. XALATAN [Concomitant]
  7. COVERSYL (PERINDOPRIL) [Concomitant]
  8. ADALAT CC [Concomitant]
  9. EVISTA [Concomitant]
  10. BUP-4 (PROPIVERINE HYDROCHLORIDE) [Concomitant]

REACTIONS (10)
  - ACCIDENT [None]
  - CHOLECYSTITIS [None]
  - CHOLELITHIASIS [None]
  - EAR INJURY [None]
  - FALL [None]
  - GASTRITIS [None]
  - HYPERHIDROSIS [None]
  - LACERATION [None]
  - PANCREATITIS ACUTE [None]
  - SPINAL COMPRESSION FRACTURE [None]
